FAERS Safety Report 7819404-X (Version None)
Quarter: 2011Q4

REPORT INFORMATION
  Report Type: 
  Country: None (occurrence: None)
  Receive Date: 20111018
  Receipt Date: 20110111
  Transmission Date: 20120403
  Serious: No
  Sender: FDA-Public Use
  Company Number: US-ASTRAZENECA-2011SE01862

PATIENT
  Age: 63 Year
  Sex: Female
  Weight: 72.6 kg

DRUGS (2)
  1. SYMBICORT [Suspect]
     Dosage: 80/4.5 TWO PUFFS TWO TIMES DAILY
     Route: 055
  2. SYMBICORT [Suspect]
     Indication: CHRONIC OBSTRUCTIVE PULMONARY DISEASE
     Dosage: 80/4.5 TWO PUFFS TWO TIMES DAILY
     Route: 055
     Dates: start: 20100101, end: 20100101

REACTIONS (7)
  - BRONCHOSPASM [None]
  - COUGH [None]
  - DYSPNOEA [None]
  - VOMITING [None]
  - REACTION TO PRESERVATIVES [None]
  - DYSPHONIA [None]
  - MALAISE [None]
